FAERS Safety Report 22643371 (Version 1)
Quarter: 2023Q2

REPORT INFORMATION
  Report Type: Other
  Country: US (occurrence: None)
  Receive Date: 20230627
  Receipt Date: 20230627
  Transmission Date: 20230722
  Serious: Yes (Hospitalization)
  Sender: FDA-Public Use
  Company Number: US-ROCHE-3374236

PATIENT
  Age: 55 Year
  Sex: Female

DRUGS (27)
  1. OCRELIZUMAB [Suspect]
     Active Substance: OCRELIZUMAB
     Indication: Multiple sclerosis
     Route: 042
     Dates: start: 20200922, end: 20201006
  2. OCRELIZUMAB [Suspect]
     Active Substance: OCRELIZUMAB
     Route: 042
     Dates: start: 20201006
  3. DIMETHYL FUMARATE [Concomitant]
     Active Substance: DIMETHYL FUMARATE
     Dates: start: 2015, end: 2019
  4. GLATIRAMER ACETATE [Concomitant]
     Active Substance: GLATIRAMER ACETATE
  5. ACETAMINOPHEN [Concomitant]
     Active Substance: ACETAMINOPHEN
     Dates: start: 20200922
  6. DIPHENHYDRAMINE [Concomitant]
     Active Substance: DIPHENHYDRAMINE
     Dates: start: 20200922
  7. METHYLPREDNISOLONE SODIUM SUCCINATE [Concomitant]
     Active Substance: METHYLPREDNISOLONE SODIUM SUCCINATE
     Dates: start: 20200922
  8. ARMODAFINIL [Concomitant]
     Active Substance: ARMODAFINIL
  9. TRAMADOL [Concomitant]
     Active Substance: TRAMADOL
  10. ESCITALOPRAM OXALATE [Concomitant]
     Active Substance: ESCITALOPRAM OXALATE
  11. RIZATRIPTAN [Concomitant]
     Active Substance: RIZATRIPTAN
  12. ALBUTEROL [Concomitant]
     Active Substance: ALBUTEROL
  13. BACLOFEN [Concomitant]
     Active Substance: BACLOFEN
     Dates: start: 20210607
  14. AMITRIPTYLINE [Concomitant]
     Active Substance: AMITRIPTYLINE
  15. ALPRAZOLAM [Concomitant]
     Active Substance: ALPRAZOLAM
  16. CAFFEINE [Concomitant]
     Active Substance: CAFFEINE
  17. AUGMENTIN [Concomitant]
     Active Substance: AMOXICILLIN\CLAVULANATE POTASSIUM
  18. ONDANSETRON [Concomitant]
     Active Substance: ONDANSETRON
  19. ASCORBIC ACID [Concomitant]
     Active Substance: ASCORBIC ACID
  20. IRON [Concomitant]
     Active Substance: IRON
  21. FLAXSEED [Concomitant]
     Active Substance: FLAX SEED
  22. CETIRIZINE [Concomitant]
     Active Substance: CETIRIZINE HYDROCHLORIDE
  23. NORCO [Concomitant]
     Active Substance: ACETAMINOPHEN\HYDROCODONE BITARTRATE
  24. IBUPROFEN [Concomitant]
     Active Substance: IBUPROFEN
  25. BENZONATATE [Concomitant]
     Active Substance: BENZONATATE
  26. CODEINE\GUAIFENESIN [Concomitant]
     Active Substance: CODEINE\GUAIFENESIN
  27. MUCINEX [Concomitant]
     Active Substance: GUAIFENESIN

REACTIONS (1)
  - COVID-19 [Recovered/Resolved]

NARRATIVE: CASE EVENT DATE: 20221214
